FAERS Safety Report 24424168 (Version 1)
Quarter: 2024Q4

REPORT INFORMATION
  Report Type: Spontaneous
  Country: US (occurrence: US)
  Receive Date: 20241010
  Receipt Date: 20241010
  Transmission Date: 20250114
  Serious: No
  Sender: ROCHE
  Company Number: US-ROCHE-10000100067

PATIENT
  Age: 64 Year
  Sex: Female

DRUGS (8)
  1. HERCEPTIN [Suspect]
     Active Substance: TRASTUZUMAB
     Indication: Breast cancer
     Dosage: FOR 1 YR
     Route: 065
     Dates: start: 20180327, end: 201903
  2. HERCEPTIN [Suspect]
     Active Substance: TRASTUZUMAB
     Dosage: FOR 1 YR
     Route: 065
     Dates: start: 20201211, end: 20211226
  3. HERCEPTIN [Suspect]
     Active Substance: TRASTUZUMAB
     Dosage: FOR 1 YR
     Route: 065
     Dates: start: 20220708, end: 20220923
  4. PERTUZUMAB [Suspect]
     Active Substance: PERTUZUMAB
     Indication: Breast cancer
     Route: 065
     Dates: start: 20201211, end: 20211226
  5. PERTUZUMAB [Suspect]
     Active Substance: PERTUZUMAB
     Route: 065
     Dates: start: 20220116, end: 20220618
  6. ANASTROZOLE [Suspect]
     Active Substance: ANASTROZOLE
     Indication: Breast cancer
     Route: 048
     Dates: start: 2019, end: 202011
  7. PACLITAXEL [Suspect]
     Active Substance: PACLITAXEL
     Indication: Breast cancer
     Route: 065
     Dates: start: 20201211, end: 20211226
  8. PACLITAXEL [Suspect]
     Active Substance: PACLITAXEL
     Route: 065
     Dates: start: 20220116, end: 20220618

REACTIONS (2)
  - Drug ineffective [Unknown]
  - No adverse event [Unknown]
